FAERS Safety Report 21833745 (Version 2)
Quarter: 2023Q1

REPORT INFORMATION
  Report Type: Spontaneous
  Country: BR (occurrence: BR)
  Receive Date: 20230107
  Receipt Date: 20230215
  Transmission Date: 20230418
  Serious: Yes (Hospitalization, Other)
  Sender: FDA-Public Use
  Company Number: BR-009507513-2212BRA004376

PATIENT
  Sex: Male
  Weight: 80 kg

DRUGS (2)
  1. JANUMET [Suspect]
     Active Substance: METFORMIN HYDROCHLORIDE\SITAGLIPTIN PHOSPHATE
     Indication: Diabetes mellitus
     Dosage: 500/1000 MG
     Route: 048
  2. JANUMET [Suspect]
     Active Substance: METFORMIN HYDROCHLORIDE\SITAGLIPTIN PHOSPHATE
     Dosage: 500/1000 MG
     Route: 048

REACTIONS (5)
  - Pneumonia [Recovered/Resolved]
  - Nasopharyngitis [Not Recovered/Not Resolved]
  - Fatigue [Unknown]
  - Drug ineffective [Unknown]
  - Product packaging quantity issue [Unknown]

NARRATIVE: CASE EVENT DATE: 20221130
